FAERS Safety Report 7118749-9 (Version None)
Quarter: 2010Q4

REPORT INFORMATION
  Report Type: 
  Country: None (occurrence: None)
  Receive Date: 20101027
  Receipt Date: 20100715
  Transmission Date: 20110411
  Serious: Yes (Other)
  Sender: FDA-Public Use
  Company Number: US-WYE-H16258310

PATIENT
  Age: 56 Year
  Sex: Female

DRUGS (1)
  1. PREMARIN [Suspect]
     Indication: VULVOVAGINAL DRYNESS
     Dosage: ^ONLY USED UP TO THE FIRST MARK^, VAGINAL
     Route: 067
     Dates: start: 20100714

REACTIONS (3)
  - DYSPHAGIA [None]
  - PHARYNGEAL OEDEMA [None]
  - SWELLING [None]
